FAERS Safety Report 25114154 (Version 1)
Quarter: 2025Q1

REPORT INFORMATION
  Report Type: Spontaneous
  Country: US (occurrence: US)
  Receive Date: 20250324
  Receipt Date: 20250324
  Transmission Date: 20250408
  Serious: Yes (Other)
  Sender: DR REDDYS
  Company Number: US-DRL-USA-USA/2025/03/004133

PATIENT
  Age: 8 Year
  Sex: Male

DRUGS (6)
  1. LATANOPROST [Suspect]
     Active Substance: LATANOPROST
     Indication: Intraocular pressure increased
     Dosage: NIGHT
     Route: 061
  2. TIMOLOL [Suspect]
     Active Substance: TIMOLOL
     Indication: Intraocular pressure increased
     Route: 061
  3. ATROPINE [Concomitant]
     Active Substance: ATROPINE
     Indication: Intraocular pressure increased
     Route: 061
  4. IOPIDINE [Concomitant]
     Active Substance: APRACLONIDINE HYDROCHLORIDE
     Indication: Intraocular pressure increased
     Route: 061
  5. MANNITOL [Concomitant]
     Active Substance: MANNITOL
     Indication: Intraocular pressure increased
     Route: 042
  6. ACETAZOLAMIDE [Concomitant]
     Active Substance: ACETAZOLAMIDE
     Indication: Intraocular pressure increased
     Route: 048

REACTIONS (1)
  - Drug ineffective [Unknown]
